FAERS Safety Report 7936866-8 (Version None)
Quarter: 2011Q4

REPORT INFORMATION
  Report Type: 
  Country: None (occurrence: None)
  Receive Date: 20111123
  Receipt Date: 20111123
  Transmission Date: 20120403
  Serious: Yes (Hospitalization)
  Sender: FDA-Public Use
  Company Number: None

PATIENT
  Age: 84 Year
  Sex: Female
  Weight: 56.7 kg

DRUGS (2)
  1. LEVAQUIN [Concomitant]
  2. COUMADIN [Suspect]
     Indication: ATRIAL FIBRILLATION
     Dosage: 2.5 MG
     Route: 048
     Dates: start: 20050828, end: 20110805

REACTIONS (7)
  - HAEMORRHAGIC STROKE [None]
  - HEMIPARESIS [None]
  - PNEUMONIA [None]
  - INTERNATIONAL NORMALISED RATIO INCREASED [None]
  - MENTAL STATUS CHANGES [None]
  - INTERNATIONAL NORMALISED RATIO DECREASED [None]
  - ISCHAEMIC STROKE [None]
